FAERS Safety Report 9577305 (Version 1)
Quarter: 2013Q4

REPORT INFORMATION
  Report Type: Spontaneous
  Country: US (occurrence: US)
  Receive Date: 20131001
  Receipt Date: 20131001
  Transmission Date: 20140711
  Serious: No
  Sender: FDA-Public Use
  Company Number: US-AMGEN-USASP2013007191

PATIENT
  Sex: Male
  Weight: 43.99 kg

DRUGS (10)
  1. ENBREL [Suspect]
     Indication: PSORIATIC ARTHROPATHY
     Dosage: 50 MG, QWK
     Route: 058
  2. LISINOPRIL [Concomitant]
     Dosage: 20 MG, UNK
  3. MORPHINE SULFATE [Concomitant]
     Dosage: 30 MG, CR
  4. IBUPROFEN [Concomitant]
     Dosage: 800 MG, UNK
  5. HYDROCHLOROTH [Concomitant]
     Dosage: 12.5 MG, UNK
  6. MULTIVITAMINS, PLAIN [Concomitant]
     Dosage: UNK
  7. VITAMIN B C COMPLEX [Concomitant]
     Dosage: UNK
  8. PAPAYA ENZYME                      /00389401/ [Concomitant]
     Dosage: UNK
  9. CALCIUM 600 WITH VITAMIN D [Concomitant]
     Dosage: UNK
  10. VITAMIN D                          /00107901/ [Concomitant]
     Dosage: 1000 UNIT, UNK

REACTIONS (2)
  - Photosensitivity reaction [Unknown]
  - Nausea [Unknown]
